FAERS Safety Report 9563000 (Version 1)
Quarter: 2013Q3

REPORT INFORMATION
  Report Type: Spontaneous
  Country: TR (occurrence: TR)
  Receive Date: 20130927
  Receipt Date: 20130927
  Transmission Date: 20140515
  Serious: Yes (Other)
  Sender: FDA-Public Use
  Company Number: TR-MYLANLABS-2013S1021076

PATIENT
  Age: 36 Year
  Sex: Male

DRUGS (6)
  1. PYRAZINAMIDE [Suspect]
     Indication: DISSEMINATED TUBERCULOSIS
     Dosage: 2 G/DAY
     Route: 065
  2. ALLOPURINOL [Suspect]
     Indication: HYPERURICAEMIA
     Dosage: 300 MG/DAY
     Route: 065
  3. PYRAZINAMIDE [Concomitant]
     Indication: DISSEMINATED TUBERCULOSIS
     Dosage: UNKNOWN
     Route: 065
  4. RIFAMPICIN [Concomitant]
     Indication: DISSEMINATED TUBERCULOSIS
     Dosage: UNKNOWN
     Route: 065
  5. STREPTOMYCIN [Concomitant]
     Indication: DISSEMINATED TUBERCULOSIS
     Dosage: UNKNOWN
     Route: 065
  6. ASPIRIN [Concomitant]
     Dosage: 2 G/DAY
     Route: 065

REACTIONS (1)
  - Blood uric acid increased [Recovered/Resolved]
